FAERS Safety Report 16991868 (Version 1)
Quarter: 2019Q4

REPORT INFORMATION
  Report Type: Spontaneous
  Country: US (occurrence: US)
  Receive Date: 20190920
  Receipt Date: 20190920
  Transmission Date: 20200122
  Serious: Yes (Hospitalization)
  Sender: FDA-Public Use
  Company Number: None

PATIENT
  Age: 79 Year
  Sex: Male
  Weight: 120 kg

DRUGS (1)
  1. DIPHENHYDRAMINE. [Suspect]
     Active Substance: DIPHENHYDRAMINE
     Indication: SLEEP DISORDER
     Route: 048
     Dates: start: 20070504, end: 20190803

REACTIONS (3)
  - Hallucination [None]
  - Confusional state [None]
  - Urinary retention [None]

NARRATIVE: CASE EVENT DATE: 20190803
